FAERS Safety Report 5044877-8 (Version None)
Quarter: 2006Q2

REPORT INFORMATION
  Report Type: 
  Country: None (occurrence: None)
  Receive Date: 20060601
  Receipt Date: 20060323
  Transmission Date: 20061013
  Serious: No
  Sender: FDA-Public Use
  Company Number: 2006-BP-02701BP

PATIENT
  Age: 70 Year
  Sex: Male

DRUGS (6)
  1. SPIRIVA [Suspect]
     Dosage: (18 MCG),IH
  2. AMITRIPTYLINE (AMITRIPTYLINE) [Suspect]
  3. ZOLOFT [Concomitant]
  4. NEURONTIN [Concomitant]
  5. NORVASC [Concomitant]
  6. AMITRIPTYLINE (AMITRIPTYLINE) [Concomitant]

REACTIONS (3)
  - DEPRESSION [None]
  - DIFFICULTY IN WALKING [None]
  - DYSPNOEA [None]
